FAERS Safety Report 21891717 (Version 1)
Quarter: 2023Q1

REPORT INFORMATION
  Report Type: Spontaneous
  Country: TN (occurrence: TN)
  Receive Date: 20230120
  Receipt Date: 20230120
  Transmission Date: 20230418
  Serious: Yes (Other)
  Sender: FDA-Public Use
  Company Number: TN-BAYER-2023A004294

PATIENT
  Age: 45 Year
  Sex: Female

DRUGS (3)
  1. CIPROFLOXACIN [Suspect]
     Active Substance: CIPROFLOXACIN
     Dosage: 500 MG, QD
  2. CEFOTAXIME [Suspect]
     Active Substance: CEFOTAXIME SODIUM
  3. METRONIDAZOLE [Suspect]
     Active Substance: METRONIDAZOLE

REACTIONS (2)
  - Autoimmune haemolytic anaemia [None]
  - Pancytopenia [None]
